FAERS Safety Report 7539742-8 (Version None)
Quarter: 2011Q2

REPORT INFORMATION
  Report Type: 
  Country: None (occurrence: None)
  Receive Date: 20110610
  Receipt Date: 20110530
  Transmission Date: 20111010
  Serious: Yes (Hospitalization, Other)
  Sender: FDA-Public Use
  Company Number: PHHY2010CA58351

PATIENT
  Sex: Female

DRUGS (2)
  1. SANDOSTATIN LAR [Suspect]
     Dosage: 20 MG EVERY 4 WEEKS
     Route: 030
     Dates: end: 20101026
  2. SANDOSTATIN LAR [Suspect]
     Indication: DIARRHOEA
     Dosage: 20 MG EVERY 4 WEEKS
     Route: 030
     Dates: start: 20100607

REACTIONS (4)
  - DIARRHOEA [None]
  - STAPHYLOCOCCAL INFECTION [None]
  - RENAL FAILURE [None]
  - SEPSIS [None]
